FAERS Safety Report 19011315 (Version 1)
Quarter: 2021Q1

REPORT INFORMATION
  Report Type: Report from Study
  Country: HN (occurrence: HN)
  Receive Date: 20210315
  Receipt Date: 20210315
  Transmission Date: 20210420
  Serious: Yes (Other)
  Sender: FDA-Public Use
  Company Number: NVSC2020HN224305

PATIENT
  Age: 68 Year
  Sex: Female

DRUGS (2)
  1. GALVUS MET [Suspect]
     Active Substance: METFORMIN HYDROCHLORIDE\VILDAGLIPTIN
     Indication: PRODUCT USED FOR UNKNOWN INDICATION
     Dosage: UNK,2 TO 3 YEARS AGO APPROXIMATELY 50/850MG
     Route: 065
  2. METFORMIN [Suspect]
     Active Substance: METFORMIN HYDROCHLORIDE
     Indication: PRODUCT USED FOR UNKNOWN INDICATION
     Dosage: UNK
     Route: 065

REACTIONS (14)
  - Disturbance in attention [Unknown]
  - Intellectual disability [Unknown]
  - Diarrhoea [Unknown]
  - Constipation [Unknown]
  - Flatulence [Unknown]
  - Blood glucose abnormal [Unknown]
  - Fatigue [Unknown]
  - Malaise [Unknown]
  - Tension [Unknown]
  - Colon injury [Unknown]
  - Diabetes mellitus [Unknown]
  - Pain [Unknown]
  - Tachycardia [Unknown]
  - Anxiety [Unknown]
